FAERS Safety Report 5052665-1 (Version None)
Quarter: 2006Q3

REPORT INFORMATION
  Report Type: 
  Country: None (occurrence: None)
  Receive Date: 20060712
  Receipt Date: 20060712
  Transmission Date: 20061208
  Serious: Yes (Other)
  Sender: FDA-Public Use
  Company Number: None

PATIENT
  Age: 78 Year
  Sex: Male
  Weight: 86 kg

DRUGS (11)
  1. CLINDAMYCIN [Suspect]
  2. METOPROLOL SUCCINATE [Concomitant]
  3. CALCIUM / VITAMIN D [Concomitant]
  4. POTASSIUM CHLORIDE [Concomitant]
  5. OLANZAPINE [Concomitant]
  6. METOPROLOL SUCCINATE [Concomitant]
  7. IPRATROPIUM BROMIDE [Concomitant]
  8. ALBUTEROL SPIROS [Concomitant]
  9. TIMOLOL MALEATE [Concomitant]
  10. POTASSIUM CHLORIDE [Concomitant]
  11. LORAZEPAM [Concomitant]

REACTIONS (1)
  - RASH [None]
